FAERS Safety Report 10046563 (Version 1)
Quarter: 2014Q1

REPORT INFORMATION
  Report Type: Spontaneous
  Country: US (occurrence: US)
  Receive Date: 20140331
  Receipt Date: 20140331
  Transmission Date: 20141002
  Serious: No
  Sender: FDA-Public Use
  Company Number: US-BIOGENIDEC-2014BI028230

PATIENT
  Sex: Female

DRUGS (8)
  1. TECFIDERA [Suspect]
     Indication: MULTIPLE SCLEROSIS
     Route: 048
     Dates: start: 20130528
  2. RITALIN [Concomitant]
  3. CLONAZEPAM [Concomitant]
  4. CITALOPRAM [Concomitant]
  5. GABAPENTIN [Concomitant]
  6. BACLOFEN [Concomitant]
  7. ATENOLOL [Concomitant]
  8. MECLIZINE [Concomitant]

REACTIONS (4)
  - Dizziness [Unknown]
  - Deafness unilateral [Unknown]
  - Headache [Unknown]
  - Vertigo [Unknown]
